FAERS Safety Report 5805641-2 (Version None)
Quarter: 2008Q3

REPORT INFORMATION
  Report Type: 
  Country: None (occurrence: None)
  Receive Date: 20080710
  Receipt Date: 20080326
  Transmission Date: 20090109
  Serious: No
  Sender: FDA-Public Use
  Company Number: A0717627A

PATIENT
  Age: 47 Year
  Sex: Female

DRUGS (2)
  1. TYKERB [Suspect]
     Indication: BREAST CANCER
     Dosage: 5TAB PER DAY
     Route: 048
     Dates: start: 20070101
  2. LEVOTHYROXINE SODIUM [Concomitant]
     Indication: HYPOTHYROIDISM
     Dosage: .125MG PER DAY

REACTIONS (2)
  - BLOOD THYROID STIMULATING HORMONE DECREASED [None]
  - THYROXINE INCREASED [None]
